FAERS Safety Report 18186013 (Version 1)
Quarter: 2020Q3

REPORT INFORMATION
  Report Type: Report from Study
  Country: FR (occurrence: FR)
  Receive Date: 20200824
  Receipt Date: 20200824
  Transmission Date: 20201103
  Serious: Yes (Hospitalization)
  Sender: FDA-Public Use
  Company Number: FR-TEVA-2020-FR-1816878

PATIENT
  Age: 86 Year
  Sex: Female
  Weight: 76 kg

DRUGS (5)
  1. IBRANCE [Suspect]
     Active Substance: PALBOCICLIB
     Indication: BREAST CANCER
     Dosage: 100 MILLIGRAM DAILY;
     Dates: start: 20190128
  2. HYDREA [Concomitant]
     Active Substance: HYDROXYUREA
     Indication: POLYCYTHAEMIA VERA
     Dosage: UNK
     Route: 048
  3. FENTANYL. [Suspect]
     Active Substance: FENTANYL
     Indication: PAIN
     Dosage: UNK
     Route: 062
  4. AROMASINE [Concomitant]
     Active Substance: EXEMESTANE
     Indication: BREAST CANCER
     Dosage: UNK
     Route: 048
     Dates: start: 20190121
  5. INNOHEP [Concomitant]
     Active Substance: TINZAPARIN SODIUM
     Indication: PHLEBITIS
     Dosage: UNK
     Route: 058
     Dates: start: 201605

REACTIONS (5)
  - Fall [Recovered/Resolved]
  - Confusional state [Recovered/Resolved]
  - Confusional state [Not Recovered/Not Resolved]
  - Faecaloma [Recovered/Resolved]
  - Malnutrition [Recovering/Resolving]

NARRATIVE: CASE EVENT DATE: 20190206
